FAERS Safety Report 16918699 (Version 1)
Quarter: 2019Q4

REPORT INFORMATION
  Report Type: Spontaneous
  Country: BR (occurrence: BR)
  Receive Date: 20191015
  Receipt Date: 20191015
  Transmission Date: 20200122
  Serious: Yes (Hospitalization, Other)
  Sender: FDA-Public Use
  Company Number: BR-SA-2019SA280136

PATIENT
  Age: 40 Year
  Sex: Male

DRUGS (1)
  1. ALGLUCOSIDASE ALFA [Suspect]
     Active Substance: ALGLUCOSIDASE ALFA
     Indication: GLYCOGEN STORAGE DISEASE TYPE II
     Dosage: 4 DF (50 MG), QOW
     Route: 041
     Dates: end: 20181201

REACTIONS (5)
  - Cardio-respiratory arrest [Unknown]
  - Cardiomegaly [Unknown]
  - Bronchiolitis [Unknown]
  - Hospitalisation [Unknown]
  - Weight increased [Unknown]
